FAERS Safety Report 17187653 (Version 1)
Quarter: 2019Q4

REPORT INFORMATION
  Report Type: Spontaneous
  Country: TW (occurrence: TW)
  Receive Date: 20191220
  Receipt Date: 20191220
  Transmission Date: 20200122
  Serious: Yes (Death, Hospitalization, Other)
  Sender: FDA-Public Use
  Company Number: TW-AMGEN-TWNSP2019211997

PATIENT
  Age: 82 Year
  Sex: Male

DRUGS (4)
  1. ARHEUMA [Concomitant]
     Dosage: 20 MILLIGRAM, QD
  2. ENBREL [Suspect]
     Active Substance: ETANERCEPT
     Indication: RHEUMATOID ARTHRITIS
     Dosage: 25 MILLIGRAM, 2 TIMES/WK
     Route: 058
     Dates: start: 20190826, end: 2019
  3. GENIQUIN [Concomitant]
     Dosage: 400 MILLIGRAM, QD
  4. SALAZINE [Concomitant]
     Active Substance: SULFASALAZINE
     Dosage: 1 GRAM, QD

REACTIONS (3)
  - Chest pain [Fatal]
  - Cardiac failure [Fatal]
  - Dysuria [Fatal]

NARRATIVE: CASE EVENT DATE: 20191118
